FAERS Safety Report 6829618-3 (Version None)
Quarter: 2010Q3

REPORT INFORMATION
  Report Type: 
  Country: None (occurrence: None)
  Receive Date: 20100709
  Receipt Date: 20070420
  Transmission Date: 20110219
  Serious: No
  Sender: FDA-Public Use
  Company Number: US-PFIZER INC-2007005593

PATIENT
  Sex: Female

DRUGS (2)
  1. CHANTIX [Suspect]
  2. DRUG, UNSPECIFIED [Suspect]

REACTIONS (4)
  - CHAPPED LIPS [None]
  - DRY MOUTH [None]
  - HYPERSENSITIVITY [None]
  - MALAISE [None]
